FAERS Safety Report 20951398 (Version 1)
Quarter: 2022Q2

REPORT INFORMATION
  Report Type: Spontaneous
  Country: US (occurrence: US)
  Receive Date: 20220613
  Receipt Date: 20220613
  Transmission Date: 20220721
  Serious: Yes (Death, Hospitalization, Other)
  Sender: FDA-Public Use
  Company Number: US-SAMOHPHARM-2022002535

PATIENT

DRUGS (7)
  1. CARGLUMIC ACID [Suspect]
     Active Substance: CARGLUMIC ACID
     Indication: Pyruvate carboxylase deficiency
     Dosage: UNK
  2. CITRATE [Suspect]
     Active Substance: CITRIC ACID MONOHYDRATE
     Indication: Pyruvate carboxylase deficiency
     Dosage: UNK
  3. ASPARTIC ACID [Suspect]
     Active Substance: ASPARTIC ACID
     Indication: Pyruvate carboxylase deficiency
     Dosage: UNK
  4. BIOTIN [Suspect]
     Active Substance: BIOTIN
     Indication: Pyruvate carboxylase deficiency
     Dosage: UNK
  5. ARGININE [Suspect]
     Active Substance: ARGININE
     Indication: Pyruvate carboxylase deficiency
     Dosage: UNK
  6. GLUTAMINE [Suspect]
     Active Substance: GLUTAMINE
     Indication: Pyruvate carboxylase deficiency
     Dosage: UNK
  7. RIFAXIMIN [Suspect]
     Active Substance: RIFAXIMIN
     Indication: Pancreatitis

REACTIONS (6)
  - Cardiac arrest [Fatal]
  - Pancreatitis [Unknown]
  - Hypertriglyceridaemia [Unknown]
  - Sepsis [Unknown]
  - Acidosis [Unknown]
  - Off label use [Recovered/Resolved]
